FAERS Safety Report 25974297 (Version 1)
Quarter: 2025Q4

REPORT INFORMATION
  Report Type: Spontaneous
  Country: US (occurrence: None)
  Receive Date: 20251028
  Receipt Date: 20251028
  Transmission Date: 20260118
  Serious: Yes (Other)
  Sender: FDA-CTU
  Company Number: None

PATIENT
  Age: 56 Year
  Sex: Female
  Weight: 56.15 kg

DRUGS (1)
  1. NORVASC [Suspect]
     Active Substance: AMLODIPINE BESYLATE
     Indication: Hypertension
     Dates: start: 20000101, end: 20060214

REACTIONS (3)
  - Alopecia [None]
  - Cough [None]
  - Product substitution issue [None]

NARRATIVE: CASE EVENT DATE: 20000101
